FAERS Safety Report 8519969 (Version 2)
Quarter: 2012Q4

REPORT INFORMATION
  Report Type: 
  Country: US (occurrence: US)
  Receive Date: 20120418
  Receipt Date: 20121120
  Transmission Date: 20130627
  Serious: No
  Sender: FDA-Public Use
  Company Number: US-ASTRAZENECA-2012SE11719

PATIENT
  Age: 72 Year
  Sex: Female
  Weight: 97.5 kg

DRUGS (2)
  1. NEXIUM [Suspect]
     Indication: GASTROOESOPHAGEAL REFLUX DISEASE
     Route: 048
     Dates: start: 20120215
  2. NEXIUM [Suspect]
     Indication: HIATUS HERNIA
     Route: 048
     Dates: start: 20120215

REACTIONS (5)
  - Eructation [Unknown]
  - Malaise [Unknown]
  - Eructation [Unknown]
  - Off label use [Unknown]
  - Drug ineffective [Unknown]
